FAERS Safety Report 4644439-8 (Version None)
Quarter: 2005Q2

REPORT INFORMATION
  Report Type: 
  Country: None (occurrence: None)
  Receive Date: 20050331
  Receipt Date: 20041202
  Transmission Date: 20051028
  Serious: No
  Sender: FDA-Public Use
  Company Number: 04P-163-0282172-00

PATIENT
  Age: 65 Year
  Sex: Female
  Weight: 58.9676 kg

DRUGS (8)
  1. HUMIRA [Suspect]
     Indication: RHEUMATOID ARTHRITIS
     Dosage: 40 MG, 1 IN 2 WK, SUBCUTANEOUS
     Route: 058
     Dates: start: 20040801
  2. ZOCOR [Concomitant]
  3. PREDNISONE [Concomitant]
  4. TOCOPHEROL CONCENTRATE CAP [Concomitant]
  5. CALCIUM D3 ^STADA^ [Concomitant]
  6. MULTIVIT [Concomitant]
  7. IRON [Concomitant]
  8. CYANOCOBALAMIN [Concomitant]

REACTIONS (2)
  - CERUMEN IMPACTION [None]
  - SINUSITIS [None]
